FAERS Safety Report 9682805 (Version 2)
Quarter: 2013Q4

REPORT INFORMATION
  Report Type: Spontaneous
  Country: CH (occurrence: CH)
  Receive Date: 20131112
  Receipt Date: 20131123
  Transmission Date: 20140711
  Serious: Yes (Life-Threatening, Hospitalization, Disabling, Other)
  Sender: FDA-Public Use
  Company Number: PHHY2013CH127333

PATIENT
  Age: 74 Year
  Sex: Male

DRUGS (1)
  1. GLIVEC [Suspect]
     Indication: GASTROINTESTINAL STROMAL TUMOUR
     Dosage: 400 MG/DAY
     Route: 048
     Dates: start: 20130617, end: 20130826

REACTIONS (4)
  - Renal failure acute [Recovered/Resolved with Sequelae]
  - Glomerulonephritis [Unknown]
  - Rash [Recovered/Resolved with Sequelae]
  - Blood creatinine increased [Unknown]
